FAERS Safety Report 4510067-8 (Version None)
Quarter: 2004Q4

REPORT INFORMATION
  Report Type: 
  Country: None (occurrence: None)
  Receive Date: 20041124
  Receipt Date: 20041117
  Transmission Date: 20050328
  Serious: Yes (Other)
  Sender: FDA-Public Use
  Company Number: PHBS2004BR15513

PATIENT
  Age: 60 Year
  Sex: Female
  Weight: 55 kg

DRUGS (3)
  1. DESFERAL [Suspect]
     Indication: BLOOD IRON INCREASED
     Dosage: 1 DF, QD
     Route: 030
     Dates: end: 20040901
  2. DESFERAL [Suspect]
     Dosage: 1 DF, QD
     Dates: start: 20041117
  3. FOLIC ACID [Concomitant]
     Indication: THALASSAEMIA
     Dosage: 10 MG/D
     Dates: start: 20010101

REACTIONS (3)
  - CHOLECYSTECTOMY [None]
  - INFUSION RELATED REACTION [None]
  - NODULE [None]
